FAERS Safety Report 25736693 (Version 1)
Quarter: 2025Q3

REPORT INFORMATION
  Report Type: Spontaneous
  Country: US (occurrence: None)
  Receive Date: 20250828
  Receipt Date: 20250828
  Transmission Date: 20251020
  Serious: No
  Sender: INCYTE
  Company Number: US-INCYTE CORPORATION-2025IN009157

PATIENT
  Age: 72 Year

DRUGS (1)
  1. JAKAFI [Suspect]
     Active Substance: RUXOLITINIB
     Indication: Product used for unknown indication
     Dosage: 30 MILLIGRAM, QD

REACTIONS (3)
  - Arthralgia [Unknown]
  - Asthenia [Unknown]
  - Nausea [Unknown]
